FAERS Safety Report 6284841-4 (Version None)
Quarter: 2009Q3

REPORT INFORMATION
  Report Type: 
  Country: None (occurrence: None)
  Receive Date: 20090727
  Receipt Date: 20090715
  Transmission Date: 20100115
  Serious: Yes (Hospitalization, Congenital Anomaly)
  Sender: FDA-Public Use
  Company Number: A0685066A

PATIENT
  Sex: Male
  Weight: 3.2 kg

DRUGS (2)
  1. PAXIL [Suspect]
     Indication: DEPRESSION
     Dates: start: 19990101, end: 19990101
  2. VITAMIN TAB [Concomitant]

REACTIONS (9)
  - AORTIC VALVE INCOMPETENCE [None]
  - COARCTATION OF THE AORTA [None]
  - CONGENITAL AORTIC STENOSIS [None]
  - CONGENITAL MITRAL VALVE STENOSIS [None]
  - DRUG EXPOSURE DURING PREGNANCY [None]
  - HYPOPLASTIC LEFT HEART SYNDROME [None]
  - PLEURAL EFFUSION [None]
  - RIGHT VENTRICULAR HYPERTROPHY [None]
  - TRICUSPID VALVE INCOMPETENCE [None]
